FAERS Safety Report 5145433-3 (Version None)
Quarter: 2006Q4

REPORT INFORMATION
  Report Type: 
  Country: None (occurrence: None)
  Receive Date: 20061101
  Receipt Date: 20061023
  Transmission Date: 20070319
  Serious: Yes (Other)
  Sender: FDA-Public Use
  Company Number: B0444228A

PATIENT
  Sex: Male

DRUGS (2)
  1. RETROVIR [Suspect]
     Indication: HIV INFECTION
     Dosage: INTRAVENOUS
     Route: 042
  2. RETROVIR [Suspect]
     Indication: HIV INFECTION
     Dosage: TRANSPLACENTARY
     Route: 064

REACTIONS (3)
  - CAESAREAN SECTION [None]
  - DRUG EXPOSURE DURING PREGNANCY [None]
  - NEONATAL INTESTINAL OBSTRUCTION [None]
